FAERS Safety Report 9263753 (Version 1)
Quarter: 2013Q2

REPORT INFORMATION
  Report Type: Spontaneous
  Country: FR (occurrence: FR)
  Receive Date: 20130430
  Receipt Date: 20130430
  Transmission Date: 20140414
  Serious: Yes (Hospitalization)
  Sender: FDA-Public Use
  Company Number: PHHY2013FR042058

PATIENT
  Age: 49 Year
  Sex: Female

DRUGS (12)
  1. NEORAL [Suspect]
     Dosage: 100 MG, QD
     Route: 048
     Dates: start: 20121226, end: 20130219
  2. NEORAL [Suspect]
     Dosage: 75 MG, UNK
     Dates: start: 20130219, end: 20130220
  3. VANCOMYCIN [Suspect]
     Dosage: 2 G, QD
     Route: 042
     Dates: start: 20121220, end: 20130115
  4. TAZOCILLINE [Suspect]
     Dosage: 16 G, QD
     Route: 042
     Dates: start: 20121217, end: 20130114
  5. RENITEC [Concomitant]
     Route: 048
  6. LEVOTHYROX [Concomitant]
     Route: 048
  7. VIREAD [Concomitant]
     Route: 048
     Dates: start: 20121220
  8. FORTUM [Concomitant]
     Dates: start: 20130114
  9. ZYVOXID [Concomitant]
     Dates: start: 20130115
  10. FOSCAVIR [Concomitant]
     Dates: start: 20130115
  11. ANTILYMPHOCYTE SERUM [Concomitant]
     Dates: start: 20121226
  12. LOXEN [Concomitant]

REACTIONS (1)
  - Drug reaction with eosinophilia and systemic symptoms [Recovering/Resolving]
